FAERS Safety Report 9060607 (Version 2)
Quarter: 2013Q2

REPORT INFORMATION
  Report Type: Report from Study
  Country: DE (occurrence: NL)
  Receive Date: 20130212
  Receipt Date: 20130416
  Transmission Date: 20140414
  Serious: Yes (Hospitalization, Other)
  Sender: FDA-Public Use
  Company Number: DE-ACTELION-A-US2012-71274

PATIENT
  Age: 65 Year
  Sex: Female

DRUGS (10)
  1. VENTAVIS [Suspect]
     Indication: PULMONARY ARTERIAL HYPERTENSION
     Dosage: 5 ?G, X6/DAY
     Route: 055
     Dates: start: 20120420
  2. TRACLEER [Suspect]
     Indication: PULMONARY ARTERIAL HYPERTENSION
     Dosage: 125
     Route: 048
  3. TRACLEER [Suspect]
     Dosage: 62.5 MG, BID
     Route: 048
  4. CHLORTHALIDONE [Concomitant]
  5. ENALAPRIL [Concomitant]
  6. METOPROLOL [Concomitant]
  7. ESOMEPRAZOLE [Concomitant]
  8. REVATIO [Concomitant]
  9. CRESTOR [Concomitant]
  10. FUROSEMIDE [Concomitant]

REACTIONS (3)
  - Fluid retention [Recovering/Resolving]
  - Renal impairment [Unknown]
  - Syncope [Unknown]
